FAERS Safety Report 6181711-7 (Version None)
Quarter: 2009Q2

REPORT INFORMATION
  Report Type: 
  Country: None (occurrence: None)
  Receive Date: 20090506
  Receipt Date: 20090505
  Transmission Date: 20091009
  Serious: Yes (Disabling, Other)
  Sender: FDA-Public Use
  Company Number: NL-BAYER-200919173GPV

PATIENT
  Age: 45 Year
  Sex: Male

DRUGS (5)
  1. ALEVE [Suspect]
     Indication: MIGRAINE
     Route: 065
  2. AERIUS [Concomitant]
     Indication: SEASONAL ALLERGY
     Route: 048
     Dates: start: 20070101
  3. NASACORT [Concomitant]
     Indication: SEASONAL ALLERGY
     Route: 045
     Dates: start: 20070301
  4. PULMICORT-100 [Concomitant]
     Indication: SEASONAL ALLERGY
     Route: 055
     Dates: start: 20070101
  5. LIVOCAB [Concomitant]
     Indication: RHINITIS ALLERGIC
     Route: 065
     Dates: start: 20070301

REACTIONS (1)
  - RETINAL VASCULAR THROMBOSIS [None]
